FAERS Safety Report 19149071 (Version 1)
Quarter: 2021Q2

REPORT INFORMATION
  Report Type: Spontaneous
  Country: SI (occurrence: SI)
  Receive Date: 20210417
  Receipt Date: 20210417
  Transmission Date: 20210717
  Serious: Yes (Other)
  Sender: FDA-Public Use
  Company Number: SI-ROCHE-2812401

PATIENT
  Age: 48 Year
  Sex: Male

DRUGS (5)
  1. IFOSFAMIDE. [Concomitant]
     Active Substance: IFOSFAMIDE
     Indication: PRODUCT USED FOR UNKNOWN INDICATION
     Dosage: UNK (3XR IGE?V)
     Route: 065
  2. KYMRIAH [Suspect]
     Active Substance: TISAGENLECLEUCEL
     Indication: DIFFUSE LARGE B-CELL LYMPHOMA
     Route: 065
     Dates: start: 20200707
  3. VINORELBINE [Concomitant]
     Active Substance: VINORELBINE TARTRATE
     Indication: PRODUCT USED FOR UNKNOWN INDICATION
     Dosage: UNK (3XR IG?V)
     Route: 065
  4. RITUXIMAB. [Suspect]
     Active Substance: RITUXIMAB
     Indication: DIFFUSE LARGE B-CELL LYMPHOMA
     Dosage: UNK, 6QD?MOST RECENT DOSE OF RITUXIMAB WAS RECEIVED IN /NOV/2016.
     Route: 065
     Dates: start: 201601
  5. GEMCITABINE. [Concomitant]
     Active Substance: GEMCITABINE
     Indication: PRODUCT USED FOR UNKNOWN INDICATION
     Dosage: UNK (3XR IGE?V)
     Route: 065

REACTIONS (4)
  - Pleural neoplasm [Unknown]
  - B-cell lymphoma recurrent [Unknown]
  - Horner^s syndrome [Unknown]
  - CD20 antigen positive [Unknown]

NARRATIVE: CASE EVENT DATE: 201612
